FAERS Safety Report 24005236 (Version 1)
Quarter: 2024Q2

REPORT INFORMATION
  Report Type: Spontaneous
  Country: US (occurrence: None)
  Receive Date: 20240621
  Receipt Date: 20240621
  Transmission Date: 20240716
  Serious: Yes (Death)
  Sender: FDA-Public Use
  Company Number: None

PATIENT
  Age: 9 Year
  Sex: Female
  Weight: 21.7 kg

DRUGS (9)
  1. IWILFIN [Suspect]
     Active Substance: EFLORNITHINE HYDROCHLORIDE
     Indication: Bone cancer
     Dosage: 576 MG TWICE A DAY ORAL?
     Route: 048
  2. Promacta 50 [Concomitant]
  3. Pazopanib 200 mg [Concomitant]
  4. Cyprohepatadine 4 mg [Concomitant]
  5. Cefpodoxime 100 mg [Concomitant]
  6. Bactim 400/80 mg [Concomitant]
  7. Temozolomide 20 [Concomitant]
  8. Lidocaine-pilocaine cream [Concomitant]
  9. polyethylene glycol powder [Concomitant]

REACTIONS (1)
  - Death [None]
